FAERS Safety Report 6301694-6 (Version None)
Quarter: 2009Q3

REPORT INFORMATION
  Report Type: 
  Country: None (occurrence: None)
  Receive Date: 20090807
  Receipt Date: 20090803
  Transmission Date: 20100115
  Serious: Yes (Death, Other)
  Sender: FDA-Public Use
  Company Number: PHEH2009US07997

PATIENT
  Sex: Male

DRUGS (1)
  1. EXJADE [Suspect]
     Dosage: 1125 MG, QD
     Route: 048
     Dates: start: 20090601

REACTIONS (4)
  - DEATH [None]
  - PROSTATE CANCER [None]
  - RENAL FAILURE [None]
  - SERUM FERRITIN INCREASED [None]
